FAERS Safety Report 6293730-0 (Version None)
Quarter: 2009Q3

REPORT INFORMATION
  Report Type: 
  Country: None (occurrence: None)
  Receive Date: 20090803
  Receipt Date: 20090728
  Transmission Date: 20100115
  Serious: Yes (Hospitalization)
  Sender: FDA-Public Use
  Company Number: AU-ASTRAZENECA-2001SE04294

PATIENT
  Age: 23277 Day
  Sex: Female

DRUGS (6)
  1. ARIMIDEX [Suspect]
     Indication: BREAST CANCER
     Route: 048
     Dates: start: 19981123, end: 20000706
  2. COLGOUT [Concomitant]
     Route: 048
  3. VIOXX [Concomitant]
     Route: 048
  4. ENDEP [Concomitant]
     Route: 048
     Dates: start: 20000506
  5. ATENOLOL [Concomitant]
     Route: 048
  6. AURORIX [Concomitant]
     Route: 048

REACTIONS (1)
  - PAIN IN EXTREMITY [None]
